FAERS Safety Report 12905079 (Version 1)
Quarter: 2016Q4

REPORT INFORMATION
  Report Type: Spontaneous
  Country: CA (occurrence: CA)
  Receive Date: 20161102
  Receipt Date: 20161102
  Transmission Date: 20170207
  Serious: Yes (Hospitalization, Other)
  Sender: FDA-Public Use
  Company Number: CA-BAXALTA-2016BLT007788

PATIENT
  Sex: Male
  Weight: 90 kg

DRUGS (10)
  1. ONCASPAR [Suspect]
     Active Substance: PEGASPARGASE
     Dosage: 5300 IU
     Route: 042
     Dates: start: 20151228, end: 20151228
  2. PANTOPRAZOLE [Concomitant]
     Active Substance: PANTOPRAZOLE SODIUM
     Indication: HYPERCHLORHYDRIA
  3. METOCLOPRAMIDE. [Concomitant]
     Active Substance: METOCLOPRAMIDE
     Indication: NAUSEA
  4. ONCASPAR [Suspect]
     Active Substance: PEGASPARGASE
     Dosage: 5300 IU
     Route: 042
     Dates: start: 20160926, end: 20160926
  5. MERCAPTOPURINE. [Concomitant]
     Active Substance: MERCAPTOPURINE
     Indication: T-CELL TYPE ACUTE LEUKAEMIA
  6. ONCASPAR [Suspect]
     Active Substance: PEGASPARGASE
     Dosage: 5300 IU
     Route: 042
     Dates: start: 20160822, end: 20160822
  7. HYDROMORPHONE [Concomitant]
     Active Substance: HYDROMORPHONE
     Indication: PAIN
  8. ONCASPAR [Suspect]
     Active Substance: PEGASPARGASE
     Indication: T-CELL TYPE ACUTE LEUKAEMIA
     Dosage: 5300 IU
     Route: 042
     Dates: start: 20151108, end: 20151108
  9. PENTAMIDINE [Concomitant]
     Active Substance: PENTAMIDINE
     Indication: ANTIFUNGAL PROPHYLAXIS
  10. VINCRISTINE [Concomitant]
     Active Substance: VINCRISTINE
     Indication: T-CELL TYPE ACUTE LEUKAEMIA

REACTIONS (5)
  - Rectal abscess [Unknown]
  - Pseudomonas infection [Unknown]
  - Subcutaneous abscess [Unknown]
  - Sepsis [Unknown]
  - Hypersensitivity [Recovered/Resolved]

NARRATIVE: CASE EVENT DATE: 201511
